FAERS Safety Report 9283423 (Version 1)
Quarter: 2013Q2

REPORT INFORMATION
  Report Type: Spontaneous
  Country: FR (occurrence: None)
  Receive Date: 20130506
  Receipt Date: 20130506
  Transmission Date: 20140414
  Serious: Yes (Other)
  Sender: FDA-Public Use
  Company Number: FR-011522

PATIENT
  Age: 55 Year
  Sex: Male

DRUGS (1)
  1. PICOPREP [Suspect]
     Indication: COLONOSCOPY
     Route: 048
     Dates: start: 20121121, end: 20121121

REACTIONS (1)
  - Colitis [None]
